FAERS Safety Report 14559398 (Version 4)
Quarter: 2018Q3

REPORT INFORMATION
  Report Type: Spontaneous
  Country: DE (occurrence: DE)
  Receive Date: 20180221
  Receipt Date: 20180812
  Transmission Date: 20181010
  Serious: Yes (Death, Hospitalization, Other)
  Sender: FDA-Public Use
  Company Number: DE-TEVA-2018-DE-858253

PATIENT
  Age: 74 Year
  Sex: Male
  Weight: 85 kg

DRUGS (17)
  1. DEXAMETHASONE. [Suspect]
     Active Substance: DEXAMETHASONE
     Indication: PLASMA CELL MYELOMA
     Dosage: 40 MILLIGRAM
     Route: 041
     Dates: start: 20160901, end: 20171006
  2. PREGABALIN. [Concomitant]
     Active Substance: PREGABALIN
     Indication: SPINAL COLUMN STENOSIS
     Dosage: 50 MILLIGRAM DAILY;
     Route: 048
     Dates: start: 20170915
  3. DARATUMUMAB [Concomitant]
     Active Substance: DARATUMUMAB
     Indication: PLASMA CELL MYELOMA
     Route: 041
     Dates: start: 20160908, end: 20161020
  4. METFORMIN [Concomitant]
     Active Substance: METFORMIN HYDROCHLORIDE
     Indication: TYPE 2 DIABETES MELLITUS
     Dosage: 850 MILLIGRAM DAILY; 1700MG
     Route: 048
     Dates: start: 2008
  5. LAXOFALK [Concomitant]
     Indication: CONSTIPATION
     Dosage: 1 DOSAGE FORMS DAILY; 2 SACHETS
     Route: 048
     Dates: start: 20160822
  6. PARACETAMOL [Concomitant]
     Active Substance: ACETAMINOPHEN
     Indication: BACK PAIN
     Dosage: 2000 MILLIGRAM DAILY; DAILY DOSE: 2000 MG MILLIGRAM(S) EVERY DAY
     Route: 048
     Dates: start: 201608
  7. CALCIUM BROMIDE [Concomitant]
     Active Substance: CALCIUM BROMIDE
     Indication: OSTEOLYSIS
     Dosage: 500 MILLIGRAM DAILY;
     Route: 048
     Dates: start: 20160909
  8. PALLADON [Concomitant]
     Active Substance: HYDROMORPHONE
     Indication: BACK PAIN
     Dosage: 32 MILLIGRAM DAILY;
     Route: 048
     Dates: start: 20160929
  9. ACICLOVIR [Concomitant]
     Active Substance: ACYCLOVIR
     Indication: INFECTION
     Dosage: 400 MILLIGRAM DAILY;
     Route: 048
     Dates: start: 20160901
  10. REVLIMID [Suspect]
     Active Substance: LENALIDOMIDE
     Indication: PLASMA CELL MYELOMA
     Dosage: DAILY DOSE: 315 MG MILLIGRAM(S) EVERY 28 DAY
     Route: 048
     Dates: start: 20160901, end: 20171006
  11. TAMSULOSIN [Concomitant]
     Active Substance: TAMSULOSIN
     Indication: BENIGN PROSTATIC HYPERPLASIA
     Dosage: .4 MILLIGRAM DAILY;
     Route: 048
     Dates: start: 2009
  12. ZOMETA [Concomitant]
     Active Substance: ZOLEDRONIC ACID
     Indication: OSTEOLYSIS
     Dosage: 4 MILLIGRAM
     Route: 041
     Dates: start: 20160831
  13. VIGANTOLETTEN [Concomitant]
     Active Substance: CHOLECALCIFEROL
     Indication: OSTEOPOROSIS
     Dosage: 500 IU (INTERNATIONAL UNIT) DAILY;
     Route: 048
     Dates: start: 20160830
  14. CLEXANE [Concomitant]
     Active Substance: ENOXAPARIN SODIUM
     Indication: THROMBOSIS PROPHYLAXIS
     Dosage: .4 ML DAILY;
     Route: 058
     Dates: start: 20160830
  15. DARATUMUMAB [Concomitant]
     Active Substance: DARATUMUMAB
     Route: 041
     Dates: start: 20170817, end: 20170915
  16. CONTRIMOXAZOLE [Concomitant]
     Indication: INFECTION
     Dosage: 2880 MILLIGRAM DAILY; DAILY DOSE: 2880 MG MILLIGRAM(S) EVERY DAY
     Route: 048
     Dates: start: 20160818
  17. BACTRIM [Concomitant]
     Active Substance: SULFAMETHOXAZOLE\TRIMETHOPRIM
     Indication: PRODUCT USED FOR UNKNOWN INDICATION
     Dosage: 411.4286 MILLIGRAM
     Route: 065
     Dates: start: 20160818

REACTIONS (5)
  - Sudden cardiac death [Fatal]
  - Ventricular hypertrophy [Fatal]
  - Ventricular extrasystoles [Not Recovered/Not Resolved]
  - Obstructive pancreatitis [Fatal]
  - Cardiac failure acute [Fatal]

NARRATIVE: CASE EVENT DATE: 2017
